FAERS Safety Report 5328326-8 (Version None)
Quarter: 2007Q2

REPORT INFORMATION
  Report Type: 
  Country: None (occurrence: None)
  Receive Date: 20070518
  Receipt Date: 20070511
  Transmission Date: 20071010
  Serious: Yes (Other)
  Sender: FDA-Public Use
  Company Number: PHEH2007US07374

PATIENT
  Sex: Male

DRUGS (1)
  1. LESCOL XL [Suspect]
     Indication: HYPERTENSION
     Dosage: 80 MG, QD
     Route: 048
     Dates: start: 20051111

REACTIONS (1)
  - HALLUCINATION, VISUAL [None]
